FAERS Safety Report 21560444 (Version 3)
Quarter: 2023Q2

REPORT INFORMATION
  Report Type: Report from Study
  Country: DO (occurrence: DO)
  Receive Date: 20221107
  Receipt Date: 20230622
  Transmission Date: 20230722
  Serious: Yes (Other)
  Sender: FDA-Public Use
  Company Number: DO-ABBVIE-4187906

PATIENT
  Sex: Female
  Weight: 68 kg

DRUGS (3)
  1. HUMIRA [Suspect]
     Active Substance: ADALIMUMAB
     Indication: Rheumatoid arthritis
     Dosage: FORM STRENGTH 40MG
     Route: 058
     Dates: start: 20140507, end: 20221012
  2. HUMIRA [Suspect]
     Active Substance: ADALIMUMAB
     Dosage: FORM STRENGTH 40MG
     Route: 058
     Dates: end: 20230530
  3. ARACURE-H [Concomitant]
     Indication: Hypertension
     Dosage: 1 TABLET
     Route: 048
     Dates: start: 2008

REACTIONS (18)
  - Meniscus injury [Recovered/Resolved]
  - Post procedural inflammation [Recovering/Resolving]
  - Cyst [Recovering/Resolving]
  - Post procedural haematoma [Recovering/Resolving]
  - Sleep disorder [Recovered/Resolved]
  - Joint range of motion decreased [Recovering/Resolving]
  - Weight decreased [Not Recovered/Not Resolved]
  - Influenza [Recovered/Resolved]
  - Muscle rupture [Recovering/Resolving]
  - Arthralgia [Recovered/Resolved]
  - Platelet count decreased [Unknown]
  - Arthralgia [Not Recovered/Not Resolved]
  - Decreased appetite [Not Recovered/Not Resolved]
  - Joint effusion [Recovered/Resolved]
  - Abdominal discomfort [Not Recovered/Not Resolved]
  - Throat irritation [Recovered/Resolved]
  - Incision site pain [Recovering/Resolving]
  - Stress [Not Recovered/Not Resolved]

NARRATIVE: CASE EVENT DATE: 20220101
